FAERS Safety Report 7434098-3 (Version None)
Quarter: 2011Q2

REPORT INFORMATION
  Report Type: 
  Country: None (occurrence: None)
  Receive Date: 20110425
  Receipt Date: 20110415
  Transmission Date: 20111010
  Serious: Yes (Other)
  Sender: FDA-Public Use
  Company Number: BR-SOLVAY-00311003134

PATIENT
  Age: 610 Month
  Sex: Male
  Weight: 62 kg

DRUGS (4)
  1. HUMULIN R [Concomitant]
     Dosage: HUMULIN 10 IU; DAILY DOSE: 20 INTERNATIONAL UNIT(S)
     Route: 058
     Dates: start: 19970101
  2. CARBAMAZEPINE [Concomitant]
     Indication: NEUROPATHY PERIPHERAL
     Dosage: DAILY DOSE: 1 DOSAGE FORM
     Route: 048
     Dates: start: 20040101
  3. HUMULIN R [Concomitant]
     Indication: DIABETES MELLITUS
     Dosage: HUMULIN 28 IU; DAILY DOSE: 28 INTERNATIONAL UNIT(S)
     Route: 058
     Dates: start: 19970101
  4. CREON [Suspect]
     Indication: PANCREATITIS CHRONIC
     Dosage: DAILY DOSE: 6 DOSAGE FORM
     Route: 048
     Dates: end: 20110201

REACTIONS (2)
  - COLITIS [None]
  - DIARRHOEA [None]
